FAERS Safety Report 7112319-4 (Version None)
Quarter: 2010Q4

REPORT INFORMATION
  Report Type: 
  Country: None (occurrence: None)
  Receive Date: 20101119
  Receipt Date: 20100716
  Transmission Date: 20110411
  Serious: No
  Sender: FDA-Public Use
  Company Number: A0870821A

PATIENT
  Sex: Male

DRUGS (3)
  1. AVODART [Suspect]
     Indication: BENIGN PROSTATIC HYPERPLASIA
     Dosage: .5MG AT NIGHT
     Route: 048
     Dates: start: 20090101
  2. TERAZOSIN HCL [Concomitant]
  3. ASPIRIN [Concomitant]

REACTIONS (2)
  - DYSGEUSIA [None]
  - PAIN IN EXTREMITY [None]
